FAERS Safety Report 8298490-X (Version None)
Quarter: 2012Q2

REPORT INFORMATION
  Report Type: 
  Country: None (occurrence: None)
  Receive Date: 20120419
  Receipt Date: 20111205
  Transmission Date: 20120825
  Serious: No
  Sender: FDA-Public Use
  Company Number: US-ABBOTT-11P-163-0881196-00

PATIENT
  Sex: Female
  Weight: 43.584 kg

DRUGS (2)
  1. TEV-TROPIN [Suspect]
     Indication: BLOOD GROWTH HORMONE
     Route: 050
     Dates: start: 20111115
  2. LUPRON DEPOT-PED [Suspect]
     Indication: PRECOCIOUS PUBERTY
     Dates: start: 20110901

REACTIONS (3)
  - NAUSEA [None]
  - VOMITING [None]
  - HEADACHE [None]
